FAERS Safety Report 4983676-X (Version None)
Quarter: 2006Q2

REPORT INFORMATION
  Report Type: 
  Country: None (occurrence: None)
  Receive Date: 20060425
  Receipt Date: 20060425
  Transmission Date: 20061013
  Serious: Yes (Life-Threatening, Hospitalization)
  Sender: FDA-Public Use
  Company Number: None

PATIENT
  Age: 57 Year
  Sex: Female
  Weight: 111.1313 kg

DRUGS (3)
  1. FLUCONAZOLE [Suspect]
     Indication: ONYCHOMYCOSIS
     Dosage: 450 MG WEEKLY PO
     Route: 048
     Dates: start: 20051108, end: 20060119
  2. SIMVASTATIN [Suspect]
     Indication: HYPERLIPIDAEMIA
     Dosage: 80 MG Q DAY PO
     Route: 048
     Dates: start: 20040423, end: 20060119
  3. CYCLOSPORINE [Suspect]
     Dosage: 100MG BID
     Dates: start: 19940601, end: 20060119

REACTIONS (1)
  - RHABDOMYOLYSIS [None]
